FAERS Safety Report 6216709-3 (Version None)
Quarter: 2009Q2

REPORT INFORMATION
  Report Type: 
  Country: None (occurrence: None)
  Receive Date: 20090605
  Receipt Date: 20090527
  Transmission Date: 20091009
  Serious: Yes (Congenital Anomaly)
  Sender: FDA-Public Use
  Company Number: AU-JNJFOC-20070405041

PATIENT
  Sex: Male
  Weight: 2.46 kg

DRUGS (5)
  1. TOPIRAMATE [Suspect]
     Indication: DRUG EXPOSURE DURING PREGNANCY
  2. CITALOPRAM HYDROBROMIDE [Suspect]
     Indication: DEPRESSION
  3. FOLIC ACID [Suspect]
     Indication: MEDICAL DIET
     Route: 015
  4. MULTIPLE VITAMINS [Suspect]
     Indication: VITAMIN SUPPLEMENTATION
     Route: 015
  5. LAMOTRIGINE [Suspect]
     Indication: DRUG EXPOSURE DURING PREGNANCY

REACTIONS (1)
  - CHOANAL ATRESIA [None]
